FAERS Safety Report 7098523-2 (Version None)
Quarter: 2010Q4

REPORT INFORMATION
  Report Type: 
  Country: None (occurrence: None)
  Receive Date: 20101112
  Receipt Date: 20101102
  Transmission Date: 20110411
  Serious: Yes (Death)
  Sender: FDA-Public Use
  Company Number: NL-SANOFI-AVENTIS-2010SA066697

PATIENT
  Age: 63 Year
  Sex: Male
  Weight: 71 kg

DRUGS (10)
  1. FASTURTEC [Suspect]
     Route: 042
     Dates: start: 20101008, end: 20101010
  2. OXAZEPAM [Concomitant]
     Dates: start: 20100917
  3. PREDNISONE [Concomitant]
     Dates: start: 20101009
  4. KYTRIL [Concomitant]
     Dates: start: 20101009
  5. FUROSEMIDE [Concomitant]
     Dates: start: 20101011
  6. TEMAZEPAM [Concomitant]
     Dates: start: 20101001
  7. ALL OTHER THERAPEUTIC PRODUCTS [Concomitant]
     Dates: start: 20101011
  8. NEXIUM [Concomitant]
     Dates: start: 20101001
  9. MORFINE [Concomitant]
  10. PARACETAMOL [Concomitant]
     Route: 048

REACTIONS (4)
  - DEATH [None]
  - PULMONARY OEDEMA [None]
  - PYREXIA [None]
  - RESPIRATORY FAILURE [None]
